FAERS Safety Report 13143232 (Version 1)
Quarter: 2017Q1

REPORT INFORMATION
  Report Type: Spontaneous
  Country: PT (occurrence: PT)
  Receive Date: 20170123
  Receipt Date: 20170123
  Transmission Date: 20170428
  Serious: Yes (Other)
  Sender: FDA-Public Use
  Company Number: PT-MYLANLABS-2016M1057928

PATIENT

DRUGS (1)
  1. RYTMONORM 150 MG COMPRIMIDO REVESTIDO [Suspect]
     Active Substance: PROPAFENONE
     Indication: ATRIAL FIBRILLATION
     Dosage: 2 DF, BID
     Route: 048
     Dates: start: 20161208, end: 201701

REACTIONS (7)
  - Erectile dysfunction [Recovering/Resolving]
  - Balance disorder [Recovered/Resolved]
  - Asthenia [Recovered/Resolved]
  - Hypertension [Recovering/Resolving]
  - Flatulence [Recovered/Resolved]
  - Ejaculation delayed [Recovering/Resolving]
  - Eructation [Recovered/Resolved]

NARRATIVE: CASE EVENT DATE: 20161212
